FAERS Safety Report 4439698-0 (Version None)
Quarter: 2004Q3

REPORT INFORMATION
  Report Type: 
  Country: None (occurrence: None)
  Receive Date: 20040902
  Receipt Date: 20040730
  Transmission Date: 20050211
  Serious: Yes (Other)
  Sender: FDA-Public Use
  Company Number: PHNU2004DE02703

PATIENT
  Sex: Male

DRUGS (5)
  1. ZOMETA [Suspect]
     Indication: PROSTATE CANCER METASTATIC
     Dosage: 4 MG, QMO
     Dates: start: 20030201
  2. TRENANTONE [Concomitant]
     Dosage: 1 DF, Q3MO
     Dates: start: 20020101
  3. MORPHINE [Concomitant]
     Route: 065
     Dates: start: 20031201
  4. DIPYRONE INJ [Concomitant]
     Route: 065
     Dates: start: 20031201
  5. VITAMIN B COMPLEX CAP [Concomitant]
     Dosage: UNK, UNK

REACTIONS (2)
  - MYELODYSPLASTIC SYNDROME [None]
  - WHITE BLOOD CELL COUNT DECREASED [None]
